FAERS Safety Report 21233519 (Version 2)
Quarter: 2022Q3

REPORT INFORMATION
  Report Type: Spontaneous
  Country: FI (occurrence: FI)
  Receive Date: 20220819
  Receipt Date: 20220825
  Transmission Date: 20221027
  Serious: Yes (Other)
  Sender: FDA-Public Use
  Company Number: FI-BAYER-2022A115765

PATIENT
  Age: 17 Year
  Sex: Female

DRUGS (1)
  1. KYLEENA [Suspect]
     Active Substance: LEVONORGESTREL
     Dosage: 17.5?G/DAY
     Route: 015
     Dates: start: 20220301

REACTIONS (4)
  - Vaginal haemorrhage [None]
  - Coital bleeding [Recovering/Resolving]
  - Dyspareunia [None]
  - Syncope [None]

NARRATIVE: CASE EVENT DATE: 20220101
